FAERS Safety Report 10201682 (Version 1)
Quarter: 2014Q2

REPORT INFORMATION
  Report Type: Spontaneous
  Country: FR (occurrence: FR)
  Receive Date: 20140528
  Receipt Date: 20140528
  Transmission Date: 20141212
  Serious: Yes (Hospitalization)
  Sender: FDA-Public Use
  Company Number: FR-PFIZER INC-2014139929

PATIENT
  Age: 65 Year
  Sex: Male

DRUGS (7)
  1. ADVIL [Suspect]
     Indication: INFLUENZA LIKE ILLNESS
     Dosage: UNK
     Route: 048
     Dates: start: 20130621, end: 201306
  2. PARACETAMOL [Concomitant]
     Indication: INFLUENZA LIKE ILLNESS
     Dosage: UNK
     Route: 048
     Dates: start: 20130621, end: 20130622
  3. KARDEGIC [Concomitant]
     Dosage: 1 DF, DAILY
  4. COVERSYL [Concomitant]
     Dosage: 1 DF, DAILY
  5. EZETROL [Concomitant]
     Dosage: 1 DF, DAILY
  6. VERAPAMIL [Concomitant]
     Dosage: 1 DF, DAILY
  7. PLAVIX [Concomitant]
     Dosage: 75 MG, UNK

REACTIONS (6)
  - Rash maculo-papular [Recovered/Resolved]
  - Mouth ulceration [Recovered/Resolved]
  - Anaemia [Unknown]
  - Lymphopenia [Unknown]
  - Hypoproteinaemia [Unknown]
  - Hypoalbuminaemia [Unknown]
